FAERS Safety Report 8877498 (Version 1)
Quarter: 2012Q4

REPORT INFORMATION
  Report Type: Spontaneous
  Country: US (occurrence: None)
  Receive Date: 20121026
  Receipt Date: 20121026
  Transmission Date: 20130627
  Serious: Yes (Hospitalization)
  Sender: FDA-Public Use
  Company Number: 2012AP003435

PATIENT
  Age: 34 Year
  Sex: Female

DRUGS (4)
  1. ZOLPIDEM [Suspect]
     Indication: OVERDOSE
  2. FENTANYL [Suspect]
  3. LORAZEPAM [Suspect]
  4. OXYCODONE [Suspect]

REACTIONS (7)
  - Toxicity to various agents [None]
  - Overdose [None]
  - Unresponsive to stimuli [None]
  - Blood pressure increased [None]
  - Heart rate increased [None]
  - Electrocardiogram T wave inversion [None]
  - Cardiomyopathy [None]
